FAERS Safety Report 14422858 (Version 1)
Quarter: 2018Q1

REPORT INFORMATION
  Report Type: Spontaneous
  Country: US (occurrence: US)
  Receive Date: 20180123
  Receipt Date: 20180123
  Transmission Date: 20180509
  Serious: Yes (Other)
  Sender: FDA-Public Use
  Company Number: US-ENDO PHARMACEUTICALS INC-2017-000263

PATIENT
  Sex: Male
  Weight: 95.25 kg

DRUGS (4)
  1. LYRICA [Concomitant]
     Active Substance: PREGABALIN
     Indication: NERVE INJURY
     Dosage: 600 MG, DAILY
     Route: 048
     Dates: start: 2013
  2. LYRICA [Concomitant]
     Active Substance: PREGABALIN
     Indication: NEURALGIA
     Dosage: 300 MG, QID
     Route: 048
     Dates: start: 2011
  3. PERCOCET [Suspect]
     Active Substance: ACETAMINOPHEN\OXYCODONE HYDROCHLORIDE
     Dosage: 10 MG, QID
     Route: 065
     Dates: start: 2016, end: 2016
  4. LYRICA [Concomitant]
     Active Substance: PREGABALIN
     Indication: BACK PAIN
     Dosage: 300 MG, QID
     Route: 048

REACTIONS (1)
  - Drug dependence [Unknown]

NARRATIVE: CASE EVENT DATE: 2016
